FAERS Safety Report 7121552-7 (Version None)
Quarter: 2010Q4

REPORT INFORMATION
  Report Type: 
  Country: None (occurrence: None)
  Receive Date: 20101119
  Receipt Date: 20101119
  Transmission Date: 20110411
  Serious: Yes (Hospitalization)
  Sender: FDA-Public Use
  Company Number: None

PATIENT
  Age: 79 Year
  Sex: Male
  Weight: 67 kg

DRUGS (1)
  1. DICLOFENAC SODIUM [Suspect]
     Indication: PAIN
     Dosage: 75 MG BID PO
     Route: 048
     Dates: start: 20100305, end: 20101101

REACTIONS (1)
  - DUODENAL ULCER [None]
